FAERS Safety Report 5164307-5 (Version None)
Quarter: 2006Q4

REPORT INFORMATION
  Report Type: 
  Country: None (occurrence: None)
  Receive Date: 20061129
  Receipt Date: 20061129
  Transmission Date: 20070319
  Serious: No
  Sender: FDA-Public Use
  Company Number: None

PATIENT
  Age: 29 Year
  Sex: Female
  Weight: 54.8852 kg

DRUGS (1)
  1. ORTHO TRI-CYCLEN LO [Suspect]
     Indication: ORAL CONTRACEPTION
     Dosage: QD PO
     Route: 048
     Dates: start: 20061120, end: 20061128

REACTIONS (6)
  - AGGRESSION [None]
  - CRYING [None]
  - FEELING ABNORMAL [None]
  - INSOMNIA [None]
  - MOOD ALTERED [None]
  - PAIN IN EXTREMITY [None]
